FAERS Safety Report 5221908-3 (Version None)
Quarter: 2007Q1

REPORT INFORMATION
  Report Type: 
  Country: None (occurrence: None)
  Receive Date: 20070129
  Receipt Date: 20051214
  Transmission Date: 20070707
  Serious: No
  Sender: FDA-Public Use
  Company Number: US-GLAXOSMITHKLINE-A0585885A

PATIENT
  Age: 35 Year
  Sex: Male

DRUGS (2)
  1. WELLBUTRIN [Suspect]
     Route: 048
  2. WELLBUTRIN XL [Suspect]
     Indication: DEPRESSION
     Dosage: 300MG PER DAY
     Route: 048
     Dates: start: 20051102, end: 20051207

REACTIONS (3)
  - GASTROINTESTINAL DISORDER [None]
  - PROSTATIC DISORDER [None]
  - URETHRAL PAIN [None]
